FAERS Safety Report 6088923-1 (Version None)
Quarter: 2009Q1

REPORT INFORMATION
  Report Type: 
  Country: None (occurrence: None)
  Receive Date: 20090224
  Receipt Date: 20090213
  Transmission Date: 20090719
  Serious: Yes (Other)
  Sender: FDA-Public Use
  Company Number: US-JNJCH-2009004481

PATIENT
  Age: 73 Year
  Sex: Female
  Weight: 90.7 kg

DRUGS (7)
  1. LUBRIDERM SENSITIVE SKIN THERAPY [Suspect]
     Indication: DRY SKIN
     Dosage: TEXT:^ENOUGH FOR FACE^ ONCE DAILY
     Route: 061
     Dates: start: 20090208, end: 20090210
  2. BENADRYL CREAM EXTRA STRENGTH [Suspect]
     Indication: DRUG THERAPY
     Dosage: TEXT:UNSPECIFIED
     Route: 061
  3. SYNTHROID [Concomitant]
     Indication: THYROID DISORDER
     Dosage: TEXT:TWO DAILY
     Route: 048
  4. PREDNISONE TAB [Concomitant]
     Indication: MYALGIA
     Dosage: TEXT:ONE DAILY
     Route: 048
  5. CENTRUM [Concomitant]
     Indication: VITAMIN SUPPLEMENTATION
     Dosage: TEXT:ONE DAILY
     Route: 048
  6. ASPIRIN [Concomitant]
     Indication: CARDIAC DISORDER
     Dosage: TEXT:ONE DAILY
     Route: 048
  7. GLYBURIDE [Concomitant]
     Indication: DIABETES MELLITUS
     Dosage: TEXT:1 TABLET UNSPECIFIED
     Route: 048

REACTIONS (5)
  - CONDITION AGGRAVATED [None]
  - EYE SWELLING [None]
  - PRURITUS [None]
  - RASH [None]
  - SWELLING FACE [None]
